FAERS Safety Report 6955655-4 (Version None)
Quarter: 2010Q3

REPORT INFORMATION
  Report Type: 
  Country: None (occurrence: None)
  Receive Date: 20100830
  Receipt Date: 20100825
  Transmission Date: 20110219
  Serious: Yes (Hospitalization)
  Sender: FDA-Public Use
  Company Number: DE-ROCHE-701377

PATIENT
  Sex: Female
  Weight: 56 kg

DRUGS (6)
  1. BEVACIZUMAB [Suspect]
     Indication: BREAST CANCER
     Dosage: LAST DOSE: 30 APRIL 2010
     Route: 065
     Dates: start: 20100319
  2. EPIRUBICIN [Suspect]
     Indication: BREAST CANCER
     Dosage: LAST DOSE: 30 APRIL 2010
     Route: 065
     Dates: start: 20100319
  3. CYCLOPHOSPHAMIDE [Suspect]
     Indication: BREAST CANCER
     Dosage: LAST DOSE: 30 APRIL 2010
     Route: 065
     Dates: start: 20100319
  4. EMEND [Concomitant]
  5. DEXAMETHASONE [Concomitant]
  6. MESNA [Concomitant]

REACTIONS (1)
  - CYSTITIS [None]
